FAERS Safety Report 17821350 (Version 1)
Quarter: 2020Q2

REPORT INFORMATION
  Report Type: Spontaneous
  Country: JP (occurrence: JP)
  Receive Date: 20200525
  Receipt Date: 20200525
  Transmission Date: 20200714
  Serious: Yes (Other)
  Sender: FDA-Public Use
  Company Number: JP-PFIZER INC-2020200249

PATIENT
  Sex: Female

DRUGS (3)
  1. WYPAX [Suspect]
     Active Substance: LORAZEPAM
     Dosage: UNK, WEEKLY
     Route: 048
     Dates: start: 2000
  2. WYPAX [Suspect]
     Active Substance: LORAZEPAM
     Dosage: APPROXIMATELY HALF THE DAILY DOSE
     Route: 048
  3. WYPAX [Suspect]
     Active Substance: LORAZEPAM
     Dosage: UNK, 5X/WEEK
     Route: 048

REACTIONS (6)
  - Parkinson^s disease [Unknown]
  - Joint range of motion decreased [Unknown]
  - Product prescribing issue [Unknown]
  - Off label use [Unknown]
  - Seizure [Unknown]
  - Drug dependence [Unknown]

NARRATIVE: CASE EVENT DATE: 2015
